FAERS Safety Report 10368808 (Version 1)
Quarter: 2014Q3

REPORT INFORMATION
  Report Type: Spontaneous
  Country: US (occurrence: US)
  Receive Date: 20140807
  Receipt Date: 20140807
  Transmission Date: 20150326
  Serious: Yes (Other)
  Sender: FDA-Public Use
  Company Number: US-MYLAN-2014M1000979

PATIENT

DRUGS (4)
  1. METHIMAZOLE. [Suspect]
     Active Substance: METHIMAZOLE
     Indication: HYPERTHYROIDISM
     Dosage: 30MG DAILY, DOSE INCREASED
     Route: 065
  2. DOFETILIDE [Concomitant]
     Active Substance: DOFETILIDE
     Route: 065
  3. METHIMAZOLE. [Suspect]
     Active Substance: METHIMAZOLE
     Dosage: 60MG DAILY
     Route: 065
  4. AMIODARONE [Suspect]
     Active Substance: AMIODARONE
     Indication: ATRIAL FIBRILLATION
     Route: 065

REACTIONS (4)
  - Oropharyngeal pain [None]
  - Hyperthyroidism [Unknown]
  - Febrile neutropenia [Unknown]
  - Pancytopenia [Unknown]
